FAERS Safety Report 9473129 (Version 3)
Quarter: 2013Q3

REPORT INFORMATION
  Report Type: Spontaneous
  Country: BR (occurrence: BR)
  Receive Date: 20130823
  Receipt Date: 20130917
  Transmission Date: 20140515
  Serious: Yes (Death, Other)
  Sender: FDA-Public Use
  Company Number: BR-AMGEN-BRASP2013033404

PATIENT
  Age: 43 Year
  Sex: Female
  Weight: 67 kg

DRUGS (7)
  1. ENBREL [Suspect]
     Indication: RHEUMATOID ARTHRITIS
     Dosage: 50 MG, WEEKLY
     Route: 058
     Dates: start: 20091203
  2. ENBREL [Suspect]
     Dosage: 50 MG, QWK
     Route: 058
     Dates: start: 2012
  3. BENZETACIL                         /00000904/ [Concomitant]
     Indication: RHEUMATIC FEVER
     Dosage: UNK, EVERY 21 DAYS
  4. DIGOXINA [Concomitant]
     Dosage: 1 TABLET (STRENGTH 25MG) PER DAY
  5. FUROSEMIDE [Concomitant]
     Dosage: 1 TABLET (STRENGTH 25MG) PER DAY
  6. AMIODARONE [Concomitant]
     Dosage: HALF TABLET PER DAY
  7. IBUPROFEN [Concomitant]
     Indication: PAIN
     Dosage: 2 TABLETS PER DAY

REACTIONS (4)
  - Acute myocardial infarction [Fatal]
  - Mitral valve disease [Unknown]
  - Pyrexia [Unknown]
  - Nasopharyngitis [Not Recovered/Not Resolved]
